FAERS Safety Report 17655006 (Version 3)
Quarter: 2023Q2

REPORT INFORMATION
  Report Type: Spontaneous
  Country: PL (occurrence: PL)
  Receive Date: 20200410
  Receipt Date: 20230620
  Transmission Date: 20230722
  Serious: Yes (Death, Other)
  Sender: FDA-Public Use
  Company Number: PL-ACCORD-176857

PATIENT
  Age: 61 Year
  Sex: Male

DRUGS (46)
  1. GABAPENTIN [Suspect]
     Active Substance: GABAPENTIN
     Indication: Pain in extremity
     Dosage: 0.3 GRAM, TID (0.3 G, 3X/DAY)
     Route: 065
     Dates: start: 201603, end: 2016
  2. GABAPENTIN [Suspect]
     Active Substance: GABAPENTIN
     Indication: Pain
     Dosage: 300 MILLIGRAM
     Route: 065
  3. GABAPENTIN [Suspect]
     Active Substance: GABAPENTIN
     Dosage: 100 + 100 + 300 MG
     Route: 065
  4. GABAPENTIN [Suspect]
     Active Substance: GABAPENTIN
     Dosage: 900 MILLIGRAM, QD
     Route: 065
  5. GABAPENTIN [Suspect]
     Active Substance: GABAPENTIN
     Dosage: 150 MILLIGRAM, QD
     Route: 065
  6. DOCETAXEL [Suspect]
     Active Substance: DOCETAXEL
     Indication: Chemotherapy
     Dosage: 50 MILLIGRAM/SQ. METER, 8 ADMINVISTRATIONS
     Route: 065
  7. LEUPROLIDE ACETATE [Suspect]
     Active Substance: LEUPROLIDE ACETATE
     Indication: Hormone therapy
     Dosage: UNK, ~NK, EVERY SIX MONTHS
     Route: 065
  8. LEUPROLIDE ACETATE [Suspect]
     Active Substance: LEUPROLIDE ACETATE
     Indication: Prostate cancer
  9. FENTANYL [Suspect]
     Active Substance: FENTANYL
     Indication: Cancer pain
     Dosage: 200 MICROGRAM (200 UG, 3-4 TIMES A DAY)
     Route: 048
     Dates: start: 201603
  10. FENTANYL [Suspect]
     Active Substance: FENTANYL
     Indication: Pain
     Dosage: 400 MICROGRAM (400 UG, 3-4 TIMES A DAY)
     Route: 002
  11. FENTANYL [Suspect]
     Active Substance: FENTANYL
     Indication: Cancer pain
     Dosage: 50 MICROGRAM, Q3D
     Route: 062
     Dates: start: 2016, end: 2016
  12. FENTANYL [Suspect]
     Active Substance: FENTANYL
     Indication: Pain
     Dosage: Q3D (50 MICROGRAM/H EVERY 3 DAYS)
     Route: 065
     Dates: start: 201603
  13. FENTANYL [Suspect]
     Active Substance: FENTANYL
     Dosage: Q3D (50 MG/H, EVERY 3 DAYS)
     Route: 062
     Dates: start: 2016, end: 2016
  14. FENTANYL [Suspect]
     Active Substance: FENTANYL
     Dosage: Q3D (200 MG/H, EVERY 3 DAYS)
     Route: 062
  15. FENTANYL [Suspect]
     Active Substance: FENTANYL
     Dosage: 400 MG
     Route: 062
  16. FENTANYL [Suspect]
     Active Substance: FENTANYL
     Dosage: 200 MICROGRAM, QD
     Route: 062
  17. FENTANYL [Suspect]
     Active Substance: FENTANYL
     Dosage: 50 MICROGRAM, QD
     Route: 062
     Dates: start: 201603
  18. MORPHINE SULFATE [Suspect]
     Active Substance: MORPHINE SULFATE
     Indication: Pain
     Dosage: 0.02 G, 4X PER DAY, (FAST-RELEASE)
     Route: 065
     Dates: start: 201603
  19. DICLOFENAC [Suspect]
     Active Substance: DICLOFENAC
     Indication: Pain
     Dosage: 100 MG, 2X/DAY
     Route: 065
  20. ACETAMINOPHEN\TRAMADOL [Suspect]
     Active Substance: ACETAMINOPHEN\TRAMADOL
     Indication: Analgesic therapy
     Dosage: UP TO FOUR TIMES A DAY, AS NEEDED,
     Route: 065
  21. ACETAMINOPHEN\TRAMADOL [Suspect]
     Active Substance: ACETAMINOPHEN\TRAMADOL
     Dosage: 75/650 MG/MG, AS NEEDED, UP TO 4 TIMES A DAY
     Route: 065
  22. TRAMADOL [Suspect]
     Active Substance: TRAMADOL
     Indication: Pain
     Dosage: 37.5 MG, ADHOC UPTO 4 TIMES DAILY
     Route: 065
  23. KETOPROFEN [Suspect]
     Active Substance: KETOPROFEN
     Indication: Pain
     Dosage: 100 MILLIGRAM, BID
     Route: 065
     Dates: start: 201603
  24. KETOPROFEN [Suspect]
     Active Substance: KETOPROFEN
     Dosage: 200 MILLIGRAM, QD (100 MILLIGRAM, BID)
     Route: 065
     Dates: start: 201605
  25. KETOPROFEN [Suspect]
     Active Substance: KETOPROFEN
     Dosage: 200 MILLIGRAM, QD
     Route: 065
  26. DENOSUMAB [Suspect]
     Active Substance: DENOSUMAB
     Indication: Prostate cancer
     Dosage: 120 MILLIGRAM, Q28D
     Route: 058
     Dates: start: 201603
  27. BICALUTAMIDE [Suspect]
     Active Substance: BICALUTAMIDE
     Indication: Prostate cancer
     Dosage: 50 MILLIGRAM, QD, 50 MG, PER DAY
     Route: 065
     Dates: start: 201603
  28. ACETAMINOPHEN [Suspect]
     Active Substance: ACETAMINOPHEN
     Indication: Pain
     Dosage: 375 MILLIGRAM, 375 MG, ADHOC UPTO 4 TIMES DAILY
     Route: 065
  29. PREGABALIN [Concomitant]
     Active Substance: PREGABALIN
     Dosage: 0.075 G, 2X PER DAY, (1-0-1)
     Route: 065
  30. PREGABALIN [Concomitant]
     Active Substance: PREGABALIN
     Dosage: 0.15 GRAM, BID 1-0-1
     Route: 065
  31. PREGABALIN [Concomitant]
     Active Substance: PREGABALIN
     Dosage: 0.15 GRAM, QD
     Route: 065
  32. IRON [Concomitant]
     Active Substance: IRON
     Dosage: UNK
     Route: 065
  33. TAPENTADOL [Concomitant]
     Active Substance: TAPENTADOL
     Dosage: 75 MILLIGRAM
     Route: 065
  34. TAPENTADOL [Concomitant]
     Active Substance: TAPENTADOL
     Dosage: 0.05 G, 2X PER DAY (SLOW-RELEASE)
     Route: 065
  35. TAPENTADOL [Concomitant]
     Active Substance: TAPENTADOL
     Dosage: 100 MILLIGRAM
     Route: 065
  36. TAPENTADOL [Concomitant]
     Active Substance: TAPENTADOL
     Dosage: 150 MILLIGRAM
     Route: 065
  37. NIMESULIDE [Concomitant]
     Active Substance: NIMESULIDE
     Dosage: BID, 1-0-1
     Route: 065
  38. METAMIZOLE [Concomitant]
     Active Substance: METAMIZOLE
     Dosage: 2 DOSAGE FORM, 2 DF, UP TO 4 TIMES PER DAY
     Route: 065
  39. DEXKETOPROFEN [Concomitant]
     Active Substance: DEXKETOPROFEN
     Dosage: 1 DOSAGE FORM, 1 DF, UP TO 3 TIMES PER DAY
     Route: 065
  40. ABIRATERONE [Concomitant]
     Active Substance: ABIRATERONE
     Dosage: UNK
     Route: 065
  41. VITAMIN D3 [Concomitant]
     Active Substance: CHOLECALCIFEROL
     Dosage: 4000 INTERNATIONAL UNIT, QD
     Route: 065
     Dates: start: 201603
  42. VITAMIN D3 [Concomitant]
     Active Substance: CHOLECALCIFEROL
     Dosage: UNK
     Route: 065
  43. VITAMIN D3 [Concomitant]
     Active Substance: CHOLECALCIFEROL
     Dosage: UNK
     Route: 065
  44. MORPHINE [Concomitant]
     Active Substance: MORPHINE
     Indication: Cancer pain
     Dosage: 0.08 GRAM, QD
     Route: 065
     Dates: start: 201603
  45. MORPHINE [Concomitant]
     Active Substance: MORPHINE
     Indication: Pain
     Dosage: 0.02 GRAM, QID
     Route: 065
     Dates: start: 201603
  46. MORPHINE [Concomitant]
     Active Substance: MORPHINE
     Dosage: 20 MG
     Route: 065

REACTIONS (19)
  - Quality of life decreased [Fatal]
  - Confusional state [Fatal]
  - Constipation [Fatal]
  - Decreased appetite [Fatal]
  - Chronic kidney disease [Fatal]
  - Allodynia [Fatal]
  - Dermatitis allergic [Fatal]
  - Drug ineffective [Fatal]
  - Polyneuropathy [Fatal]
  - Toxicity to various agents [Recovered/Resolved]
  - Metastases to lung [Recovered/Resolved]
  - Metastases to bone [Unknown]
  - Anaemia [Unknown]
  - Hyperaesthesia [Recovered/Resolved]
  - Drug dependence [Unknown]
  - Product use in unapproved indication [Unknown]
  - Prostate cancer [Unknown]
  - Polyneuropathy in malignant disease [Unknown]
  - Malignant neoplasm progression [Unknown]

NARRATIVE: CASE EVENT DATE: 20160101
